FAERS Safety Report 10419702 (Version 1)
Quarter: 2014Q2

REPORT INFORMATION
  Report Type: Spontaneous
  Country: US (occurrence: None)
  Receive Date: 20140625
  Receipt Date: 20140625
  Transmission Date: 20141212
  Serious: No
  Sender: FDA-Public Use
  Company Number: A-US2014-94730

PATIENT
  Age: 88 Year
  Sex: Female

DRUGS (1)
  1. OPSUMIT (MACITENTAN) TABLET [Suspect]
     Indication: PULMONARY HYPERTENSION
     Dosage: UNK, ORAL
     Route: 048
     Dates: start: 20140203

REACTIONS (6)
  - Hypersensitivity [None]
  - Sinus congestion [None]
  - Cough [None]
  - Productive cough [None]
  - Upper-airway cough syndrome [None]
  - Increased upper airway secretion [None]
